FAERS Safety Report 5376546-9 (Version None)
Quarter: 2007Q2

REPORT INFORMATION
  Report Type: 
  Country: None (occurrence: None)
  Receive Date: 20070629
  Receipt Date: 20070620
  Transmission Date: 20071010
  Serious: Yes (Other)
  Sender: FDA-Public Use
  Company Number: 2007SP012324

PATIENT
  Age: 31 Year
  Sex: Male

DRUGS (1)
  1. PEGINTERFRON ALFA-2B (S-P) (PEGINTERFERON ALFA-2B) [Suspect]
     Indication: HEPATITIS C
     Dosage: 105 MCG;QW

REACTIONS (2)
  - ANXIETY [None]
  - PLEUROTHOTONUS [None]
